FAERS Safety Report 9859020 (Version 2)
Quarter: 2014Q1

REPORT INFORMATION
  Report Type: Spontaneous
  Country: IT (occurrence: IT)
  Receive Date: 20140131
  Receipt Date: 20140327
  Transmission Date: 20141002
  Serious: Yes (Hospitalization, Other)
  Sender: FDA-Public Use
  Company Number: IT-PFIZER INC-2014028974

PATIENT
  Age: 43 Year
  Sex: Female

DRUGS (3)
  1. HALCION [Suspect]
     Dosage: 5 DF (250 UG)
     Route: 048
     Dates: start: 20140125, end: 20140125
  2. XANAX [Suspect]
     Dosage: 20 GTT, UNK
     Route: 048
     Dates: start: 20140125, end: 20140125
  3. TAVOR [Concomitant]

REACTIONS (5)
  - Drug abuse [Recovering/Resolving]
  - Intentional self-injury [Recovering/Resolving]
  - Agitation [Recovering/Resolving]
  - Sedation [Recovering/Resolving]
  - Sopor [Recovering/Resolving]
